FAERS Safety Report 15189507 (Version 1)
Quarter: 2018Q3

REPORT INFORMATION
  Report Type: Report from Study
  Country: ES (occurrence: ES)
  Receive Date: 20180724
  Receipt Date: 20180724
  Transmission Date: 20181010
  Serious: Yes (Death)
  Sender: FDA-Public Use
  Company Number: ES-PFIZER INC-2018295202

PATIENT
  Age: 31 Year
  Sex: Female

DRUGS (3)
  1. AMPHOTERICIN B. [Suspect]
     Active Substance: AMPHOTERICIN B
     Indication: BLASTOMYCOSIS
     Dosage: 1.3 MG/KG, UNK
  2. 5?FLUOROCYTOSINE [Suspect]
     Active Substance: FLUCYTOSINE
     Indication: BLASTOMYCOSIS
     Dosage: 3 MG/KG, UNK
  3. FLUCONAZOLE. [Suspect]
     Active Substance: FLUCONAZOLE
     Indication: BLASTOMYCOSIS
     Dosage: 400 MG, UNK

REACTIONS (1)
  - Drug ineffective [Fatal]
